FAERS Safety Report 20362923 (Version 1)
Quarter: 2022Q1

REPORT INFORMATION
  Report Type: Spontaneous
  Country: US (occurrence: None)
  Receive Date: 20220120
  Receipt Date: 20220120
  Transmission Date: 20220423
  Serious: No
  Sender: FDA-Public Use
  Company Number: None

PATIENT
  Age: 49 Year
  Sex: Female
  Weight: 70.76 kg

DRUGS (2)
  1. COPAXONE [Suspect]
     Active Substance: GLATIRAMER ACETATE
  2. GLATIRAMER [Concomitant]
     Active Substance: GLATIRAMER
     Dates: start: 20210601

REACTIONS (3)
  - Paraesthesia [None]
  - Memory impairment [None]
  - Headache [None]

NARRATIVE: CASE EVENT DATE: 20220120
